FAERS Safety Report 23265874 (Version 3)
Quarter: 2024Q1

REPORT INFORMATION
  Report Type: Report from Study
  Country: US (occurrence: US)
  Receive Date: 20231206
  Receipt Date: 20240321
  Transmission Date: 20240409
  Serious: Yes (Hospitalization)
  Sender: FDA-Public Use
  Company Number: US-ABBVIE-5505306

PATIENT
  Sex: Female

DRUGS (6)
  1. VENCLEXTA [Suspect]
     Active Substance: VENETOCLAX
     Indication: Chronic lymphocytic leukaemia
     Dosage: WEEK 1, STRENGTH 10 MG, FREQUENCY TEXT: 1 TB/ DAY FOR WEEK 1
     Route: 048
     Dates: start: 2023, end: 2023
  2. VENCLEXTA [Suspect]
     Active Substance: VENETOCLAX
     Indication: Chronic lymphocytic leukaemia
     Dosage: WEEK 2, STRENGTH 50 MG, TAKE 1 TABLET WITH FOOD DAILY, FIRST AND LAST ADMIN DATE: 2023, FREQUENCY...
     Route: 048
  3. VENCLEXTA [Suspect]
     Active Substance: VENETOCLAX
     Indication: Chronic lymphocytic leukaemia
     Dosage: WEEK 3, STRENGTH 100 MG, TAKE 1 TABLET WITH FOOD DAILY, FIRST AND LAST ADMIN DATE: 2023, FREQUENC...
     Route: 048
  4. VENCLEXTA [Suspect]
     Active Substance: VENETOCLAX
     Indication: Chronic lymphocytic leukaemia
     Dosage: WEEK 4, STRENGTH 100 MG, TAKE 2 TABLET WITH FOOD DAILY, FIRST AND LAST ADMIN DATE: 2023, FREQUENC...
     Route: 048
  5. VENCLEXTA [Suspect]
     Active Substance: VENETOCLAX
     Indication: Chronic lymphocytic leukaemia
     Dosage: AS DIRECTED BY PHYSICIAN, FIRST AND LAST ADMIN DATE: 2023
     Route: 048
  6. VENCLEXTA [Suspect]
     Active Substance: VENETOCLAX
     Indication: Chronic lymphocytic leukaemia
     Dosage: STRENGTH 50MG, TAKE 1 TABLET WITH FOOD DAILY, FIRST ADMIN DATE: 2023
     Route: 048
     Dates: end: 20231119

REACTIONS (7)
  - COVID-19 [Recovering/Resolving]
  - Abdominal discomfort [Recovering/Resolving]
  - Respiratory tract congestion [Recovering/Resolving]
  - Pneumonia [Recovering/Resolving]
  - Respiratory tract infection bacterial [Recovering/Resolving]
  - Immunodeficiency [Unknown]
  - Infection susceptibility increased [Unknown]

NARRATIVE: CASE EVENT DATE: 20230101
